FAERS Safety Report 7746620-8 (Version None)
Quarter: 2011Q3

REPORT INFORMATION
  Report Type: 
  Country: None (occurrence: None)
  Receive Date: 20110913
  Receipt Date: 20110912
  Transmission Date: 20111222
  Serious: Yes (Death)
  Sender: FDA-Public Use
  Company Number: JP-B.I. PHARMACEUTICALS,INC./RIDGEFIELD-2011-BP-18184NB

PATIENT
  Sex: Male

DRUGS (10)
  1. SELEBEX [Concomitant]
     Dosage: 150 MG
     Route: 048
     Dates: start: 20110623, end: 20110711
  2. LASIX [Concomitant]
     Route: 042
  3. ADENOSINE [Concomitant]
     Dosage: 300 MG
     Route: 048
     Dates: start: 20110604, end: 20110711
  4. KETAS [Concomitant]
     Dosage: 30 MG
     Route: 048
     Dates: start: 20110604, end: 20110711
  5. PRADAXA [Suspect]
     Indication: ATRIAL FIBRILLATION
     Dosage: 220 MG
     Route: 048
     Dates: start: 20110608, end: 20110709
  6. SERMION [Concomitant]
     Dosage: 15 MG
     Route: 048
     Dates: start: 20110604, end: 20110711
  7. CEPHADOL [Concomitant]
     Dosage: 75 MG
     Route: 048
     Dates: start: 20110604, end: 20110711
  8. GASMOTIN [Concomitant]
     Dosage: 15 MG
     Route: 048
     Dates: start: 20110604, end: 20110711
  9. FAMOTIDINE [Concomitant]
     Dosage: 40 MG
     Route: 048
     Dates: start: 20110604, end: 20110711
  10. SUNRYTHM [Concomitant]
     Route: 048
     Dates: start: 20110604, end: 20110711

REACTIONS (7)
  - MULTI-ORGAN FAILURE [None]
  - MYOCARDIAL INFARCTION [None]
  - COELIAC ARTERY OCCLUSION [None]
  - CEREBRAL INFARCTION [None]
  - MESENTERIC OCCLUSION [None]
  - INTERSTITIAL LUNG DISEASE [None]
  - PNEUMONIA ASPIRATION [None]
